FAERS Safety Report 10170185 (Version 1)
Quarter: 2014Q2

REPORT INFORMATION
  Report Type: Spontaneous
  Country: JP (occurrence: JP)
  Receive Date: 20140513
  Receipt Date: 20140513
  Transmission Date: 20141212
  Serious: Yes (Life-Threatening, Hospitalization, Other)
  Sender: FDA-Public Use
  Company Number: JP-WATSON-2014-09767

PATIENT
  Age: 4 Year
  Sex: Male

DRUGS (6)
  1. PHENYTOIN (AMALLC) [Suspect]
     Indication: INFANTILE SPASMS
     Dosage: UNK
     Route: 065
  2. VALPROIC ACID (UNKNOWN) [Suspect]
     Indication: INFANTILE SPASMS
     Dosage: UNK
     Route: 065
  3. GABAPENTIN (UNKNOWN) [Suspect]
     Indication: INFANTILE SPASMS
     Dosage: UNK
     Route: 065
  4. CLONAZEPAM [Concomitant]
     Indication: INFANTILE SPASMS
     Dosage: UNK
     Route: 065
  5. RISPERIDONE [Concomitant]
     Indication: INFANTILE SPASMS
     Dosage: UNK
     Route: 065
  6. ZONISAMIDE [Concomitant]
     Indication: INFANTILE SPASMS
     Dosage: UNK
     Route: 065

REACTIONS (1)
  - Toxic epidermal necrolysis [Recovered/Resolved]
